FAERS Safety Report 13542212 (Version 1)
Quarter: 2017Q2

REPORT INFORMATION
  Report Type: Spontaneous
  Country: US (occurrence: US)
  Receive Date: 20170512
  Receipt Date: 20170512
  Transmission Date: 20170830
  Serious: Yes (Hospitalization)
  Sender: FDA-Public Use
  Company Number: US-ROCHE-797640

PATIENT
  Age: 44 Year
  Sex: Female
  Weight: 86.6 kg

DRUGS (5)
  1. BEVACIZUMAB [Suspect]
     Active Substance: BEVACIZUMAB
     Indication: BREAST CANCER
     Route: 042
  2. CARBOPLATIN. [Concomitant]
     Active Substance: CARBOPLATIN
     Route: 065
  3. ABRAXANE [Concomitant]
     Active Substance: PACLITAXEL
     Route: 065
  4. ABRAXANE [Concomitant]
     Active Substance: PACLITAXEL
     Route: 065
  5. ABRAXANE [Concomitant]
     Active Substance: PACLITAXEL
     Route: 065

REACTIONS (2)
  - Thrombocytopenia [Recovered/Resolved]
  - Sinusitis [Recovered/Resolved with Sequelae]

NARRATIVE: CASE EVENT DATE: 20110702
